FAERS Safety Report 15910162 (Version 1)
Quarter: 2019Q1

REPORT INFORMATION
  Report Type: Spontaneous
  Country: US (occurrence: US)
  Receive Date: 20190204
  Receipt Date: 20190204
  Transmission Date: 20190417
  Serious: No
  Sender: FDA-Public Use
  Company Number: US-ABBVIE-18K-163-2353028-00

PATIENT

DRUGS (1)
  1. HUMIRA [Suspect]
     Active Substance: ADALIMUMAB
     Indication: PSORIASIS
     Route: 058

REACTIONS (6)
  - Injection site pain [Unknown]
  - Pruritus [Unknown]
  - Injection site haemorrhage [Unknown]
  - Rash [Unknown]
  - Hidradenitis [Unknown]
  - Injection site bruising [Unknown]

NARRATIVE: CASE EVENT DATE: 201805
